FAERS Safety Report 9319633 (Version 17)
Quarter: 2016Q1

REPORT INFORMATION
  Report Type: Spontaneous
  Country: US (occurrence: US)
  Receive Date: 20130530
  Receipt Date: 20160211
  Transmission Date: 20160526
  Serious: Yes (Hospitalization, Other)
  Sender: FDA-Public Use
  Company Number: US-GLAXOSMITHKLINE-A1016695A

PATIENT
  Sex: Female

DRUGS (17)
  1. ADCIRCA [Suspect]
     Active Substance: TADALAFIL
     Indication: PRODUCT USED FOR UNKNOWN INDICATION
     Dosage: UNK, U
     Route: 065
  2. FLOLAN [Suspect]
     Active Substance: EPOPROSTENOL SODIUM
     Dosage: UNK
     Dates: start: 20080401
  3. FLOLAN [Suspect]
     Active Substance: EPOPROSTENOL SODIUM
     Dosage: 34.8 NG/KG/MIN
     Route: 042
  4. FLOLAN [Suspect]
     Active Substance: EPOPROSTENOL SODIUM
     Dosage: UNK
     Dates: start: 20080401
  5. FLOLAN [Suspect]
     Active Substance: EPOPROSTENOL SODIUM
     Dosage: 34.8 NG/KG/MIN
     Route: 042
  6. OPSUMIT [Suspect]
     Active Substance: MACITENTAN
     Indication: PRODUCT USED FOR UNKNOWN INDICATION
     Dosage: UNK, U
     Route: 065
  7. FLOLAN [Suspect]
     Active Substance: EPOPROSTENOL SODIUM
     Dosage: UNK
     Dates: start: 20080401
  8. FLOLAN [Suspect]
     Active Substance: EPOPROSTENOL SODIUM
     Dosage: UNK
     Dates: start: 20080401
  9. FLOLAN [Suspect]
     Active Substance: EPOPROSTENOL SODIUM
     Dosage: UNK
     Dates: start: 20080401
  10. FLOLAN [Suspect]
     Active Substance: EPOPROSTENOL SODIUM
     Dosage: UNK
     Dates: start: 20080401
  11. COUMADIN [Concomitant]
     Active Substance: WARFARIN SODIUM
  12. FLOLAN [Suspect]
     Active Substance: EPOPROSTENOL SODIUM
     Dosage: 34.8 DF, UNK
     Dates: start: 20080412
  13. FLOLAN [Suspect]
     Active Substance: EPOPROSTENOL SODIUM
     Dosage: 29.08 DF, NG/KG/MIN
  14. FLOLAN [Suspect]
     Active Substance: EPOPROSTENOL SODIUM
     Indication: PULMONARY ARTERIAL HYPERTENSION
     Dosage: 34.8 NG/KG/MIN CONTINUOUSLYCONCENTRATION: 45,000 NG/MLVIAL STRENGTH: 1.5 MGPUMP RATEL 68 ML/DAY
     Route: 042
     Dates: start: 20080401
  15. FLOLAN [Suspect]
     Active Substance: EPOPROSTENOL SODIUM
     Dosage: UNK, 34.8 NG/KG/MIN; 45000 NG/ML, PUMP RATE: 68 ML/DAY, VIAL STRENGTH:1.5MG
  16. FLOLAN [Suspect]
     Active Substance: EPOPROSTENOL SODIUM
     Dosage: 34 DF, 34.8 NG/KG/MIN(CONCENTRATION 45,000 NG/ML, PUMP RATE 68 ML/DAY
  17. FLOLAN [Suspect]
     Active Substance: EPOPROSTENOL SODIUM
     Dosage: UNK
     Dates: start: 20080401

REACTIONS (31)
  - Sepsis [Recovering/Resolving]
  - Surgery [Unknown]
  - Catheter site pruritus [Unknown]
  - Nasal congestion [Unknown]
  - Nausea [Unknown]
  - Central venous catheterisation [Unknown]
  - Erythema [Unknown]
  - Catheter site inflammation [Unknown]
  - Fungal infection [Unknown]
  - Gingivitis [Not Recovered/Not Resolved]
  - Abscess [Unknown]
  - Skin infection [Unknown]
  - Therapeutic procedure [Unknown]
  - Catheter site rash [Unknown]
  - Perirectal abscess [Unknown]
  - Device related infection [Unknown]
  - Migraine [Not Recovered/Not Resolved]
  - Visual impairment [Unknown]
  - Dizziness [Unknown]
  - Ear infection [Unknown]
  - Head discomfort [Unknown]
  - Headache [Unknown]
  - Vision blurred [Unknown]
  - Sinusitis [Unknown]
  - Swelling [Unknown]
  - Catheter site discharge [Unknown]
  - Chest pain [Unknown]
  - Neck pain [Unknown]
  - Rash erythematous [Unknown]
  - Catheter site erythema [Unknown]
  - Dehydration [Unknown]
